FAERS Safety Report 8083498-X (Version None)
Quarter: 2012Q1

REPORT INFORMATION
  Report Type: 
  Country: None (occurrence: None)
  Receive Date: 20120127
  Receipt Date: 20110201
  Transmission Date: 20120608
  Serious: No
  Sender: FDA-Public Use
  Company Number: US-ABBOTT-11P-163-0702778-00

PATIENT
  Sex: Female
  Weight: 70.824 kg

DRUGS (1)
  1. HUMIRA [Suspect]
     Indication: CROHN'S DISEASE
     Route: 058
     Dates: start: 20081201, end: 20101115

REACTIONS (7)
  - UPPER RESPIRATORY TRACT INFECTION [None]
  - SINUSITIS [None]
  - APHONIA [None]
  - CROHN'S DISEASE [None]
  - NASOPHARYNGITIS [None]
  - COUGH [None]
  - OROPHARYNGEAL PAIN [None]
